FAERS Safety Report 18655059 (Version 1)
Quarter: 2020Q4

REPORT INFORMATION
  Report Type: Spontaneous
  Country: DE (occurrence: DE)
  Receive Date: 20201223
  Receipt Date: 20201223
  Transmission Date: 20210114
  Serious: Yes (Other)
  Sender: FDA-Public Use
  Company Number: DE-PFIZER INC-2020504688

PATIENT
  Age: 27 Year
  Sex: Female
  Weight: 58 kg

DRUGS (2)
  1. DINOPROSTONE. [Suspect]
     Active Substance: DINOPROSTONE
     Indication: LABOUR INDUCTION
     Route: 067
     Dates: start: 20180305, end: 20180305
  2. DINOPROSTONE. [Suspect]
     Active Substance: DINOPROSTONE
     Indication: PROLONGED PREGNANCY

REACTIONS (3)
  - Circulatory collapse [Unknown]
  - Uterine tachysystole [Unknown]
  - Maternal exposure during pregnancy [Unknown]

NARRATIVE: CASE EVENT DATE: 20180305
